FAERS Safety Report 16264842 (Version 1)
Quarter: 2019Q2

REPORT INFORMATION
  Report Type: Spontaneous
  Country: US (occurrence: US)
  Receive Date: 20190502
  Receipt Date: 20190502
  Transmission Date: 20190711
  Serious: Yes (Other)
  Sender: FDA-Public Use
  Company Number: US-PFIZER INC-2019184361

PATIENT
  Age: 62 Year
  Sex: Female
  Weight: 79.38 kg

DRUGS (1)
  1. IBUPROFEN. [Suspect]
     Active Substance: IBUPROFEN
     Dosage: 800 MG, 3X/DAY
     Route: 048

REACTIONS (3)
  - Presyncope [Unknown]
  - Loss of consciousness [Unknown]
  - Abdominal pain upper [Unknown]
